FAERS Safety Report 10159309 (Version 1)
Quarter: 2014Q2

REPORT INFORMATION
  Report Type: Spontaneous
  Country: US (occurrence: None)
  Receive Date: 20140506
  Receipt Date: 20140506
  Transmission Date: 20141212
  Serious: Yes (Other)
  Sender: FDA-Public Use
  Company Number: US-ALSI-201400069

PATIENT
  Age: 72 Year
  Sex: Female

DRUGS (6)
  1. CARBON DIOXIDE [Suspect]
     Indication: LAPAROSCOPIC SURGERY
     Dosage: 3,  TOTAL INTRAPERIONEAL
  2. LEVOTHYROXINE [Concomitant]
  3. SERTRALINE [Concomitant]
  4. ASPIRINE (ACETYLSALICYLIC ACID) [Concomitant]
  5. SIMVASTATIN [Concomitant]
  6. ALENDRONATE [Concomitant]

REACTIONS (3)
  - Subcutaneous emphysema [None]
  - Respiratory tract infection [None]
  - Anxiety [None]
